FAERS Safety Report 24585400 (Version 4)
Quarter: 2025Q1

REPORT INFORMATION
  Report Type: Spontaneous
  Country: JP (occurrence: JP)
  Receive Date: 20241106
  Receipt Date: 20250207
  Transmission Date: 20250408
  Serious: Yes (Hospitalization, Other)
  Sender: SANDOZ
  Company Number: JP-asahikaseip-2024-AER-06123

PATIENT
  Age: 82 Year
  Sex: Female
  Weight: 52 kg

DRUGS (14)
  1. MINODRONIC ACID [Suspect]
     Active Substance: MINODRONIC ACID
     Indication: Gastrooesophageal reflux disease
     Route: 065
     Dates: start: 20240304
  2. BONVIVA [Suspect]
     Active Substance: IBANDRONATE SODIUM
     Indication: Hypertension
     Route: 065
     Dates: start: 20240804
  3. PREDNISOLONE [Suspect]
     Active Substance: PREDNISOLONE
     Indication: Scleroderma
     Dosage: 10.000MG QD
     Route: 048
     Dates: start: 20140207
  4. RECLAST [Suspect]
     Active Substance: ZOLEDRONIC ACID
     Indication: Osteoporosis
     Route: 041
     Dates: start: 20201203, end: 20201203
  5. RECLAST [Suspect]
     Active Substance: ZOLEDRONIC ACID
     Route: 041
     Dates: start: 20211209, end: 20211209
  6. RECLAST [Suspect]
     Active Substance: ZOLEDRONIC ACID
     Route: 041
     Dates: start: 20230727, end: 20230727
  7. RECLAST [Suspect]
     Active Substance: ZOLEDRONIC ACID
     Route: 041
     Dates: start: 20240912, end: 20240912
  8. AMLODIPINE [Concomitant]
     Active Substance: AMLODIPINE BESYLATE
     Indication: Hypertension
     Dosage: 5.000MG QD
     Route: 048
     Dates: start: 20210128
  9. SODIUM FERROUS CITRATE [Concomitant]
     Active Substance: SODIUM FERROUS CITRATE
     Indication: Iron deficiency anaemia
     Dosage: 50.000MG QD
     Route: 048
     Dates: start: 20220210
  10. TOCOPHERYL NICOTINATE, D-.ALPHA. [Concomitant]
     Active Substance: TOCOPHERYL NICOTINATE, D-.ALPHA.
     Indication: Scleroderma
     Dosage: 600.000MG TID
     Route: 048
     Dates: start: 20240305
  11. TOCOPHERYL NICOTINATE, D-.ALPHA. [Concomitant]
     Active Substance: TOCOPHERYL NICOTINATE, D-.ALPHA.
     Indication: Blood disorder
  12. RABEPRAZOLE SODIUM [Concomitant]
     Active Substance: RABEPRAZOLE SODIUM
     Indication: Gastrooesophageal reflux disease
     Dosage: 10.000MG QD
     Route: 048
     Dates: start: 20140715
  13. ENALAPRIL [Concomitant]
     Active Substance: ENALAPRIL
     Indication: Hypertension
     Dosage: 5.000MG QD
     Route: 048
     Dates: start: 20200618
  14. VADADUSTAT [Concomitant]
     Active Substance: VADADUSTAT
     Indication: Nephrogenic anaemia
     Dosage: 600.000MG QD
     Route: 048
     Dates: start: 20230316

REACTIONS (1)
  - Osteonecrosis of jaw [Recovered/Resolved]

NARRATIVE: CASE EVENT DATE: 20240924
